FAERS Safety Report 15630832 (Version 1)
Quarter: 2018Q4

REPORT INFORMATION
  Report Type: Report from Study
  Country: MW (occurrence: MW)
  Receive Date: 20181119
  Receipt Date: 20181119
  Transmission Date: 20190205
  Serious: Yes (Other)
  Sender: FDA-Public Use
  Company Number: MW-CIPLA LTD.-2018MW22677

PATIENT

DRUGS (2)
  1. EFAVIRENZ. [Suspect]
     Active Substance: EFAVIRENZ
     Indication: HIV INFECTION
     Dosage: UNK
     Route: 065
  2. COARTEM [Suspect]
     Active Substance: ARTEMETHER\LUMEFANTRINE
     Indication: MALARIA PROPHYLAXIS
     Dosage: 2 DF (TABLET), 0, 8, 24, 36, 48, AND 60 H
     Route: 065

REACTIONS (1)
  - Neutropenia [Recovered/Resolved]
